FAERS Safety Report 9742636 (Version 3)
Quarter: 2015Q3

REPORT INFORMATION
  Report Type: Spontaneous
  Country: US (occurrence: US)
  Receive Date: 20131210
  Receipt Date: 20150804
  Transmission Date: 20151125
  Serious: No
  Sender: FDA-Public Use
  Company Number: US-GILEAD-2009-0024561

PATIENT
  Age: 76 Year
  Sex: Female
  Weight: 67.58 kg

DRUGS (20)
  1. PREVACID [Concomitant]
     Active Substance: LANSOPRAZOLE
  2. PERCOCET [Concomitant]
     Active Substance: ACETAMINOPHEN\OXYCODONE HYDROCHLORIDE
  3. LETAIRIS [Suspect]
     Active Substance: AMBRISENTAN
     Indication: PULMONARY ARTERIAL HYPERTENSION
     Route: 048
     Dates: start: 20090709
  4. XANAX [Concomitant]
     Active Substance: ALPRAZOLAM
  5. NORVASC [Concomitant]
     Active Substance: AMLODIPINE BESYLATE
  6. VITAMIN B [Concomitant]
     Active Substance: VITAMIN B
  7. CALTRATE [Concomitant]
     Active Substance: CALCIUM CARBONATE
  8. QUINAPRIL [Concomitant]
     Active Substance: QUINAPRIL\QUINAPRIL HYDROCHLORIDE
  9. ASPIRIN. [Concomitant]
     Active Substance: ASPIRIN
  10. CELEXA [Concomitant]
     Active Substance: CITALOPRAM HYDROBROMIDE
  11. LEVOXYL [Concomitant]
     Active Substance: LEVOTHYROXINE SODIUM
  12. 20/20 EYE DROP [Concomitant]
  13. AMBIEN [Concomitant]
     Active Substance: ZOLPIDEM TARTRATE
  14. CENTRUM SILVER [Concomitant]
     Active Substance: VITAMINS
  15. HYDROCHLOROTHIAZIDE. [Concomitant]
     Active Substance: HYDROCHLOROTHIAZIDE
  16. NITROGLYCERIN. [Concomitant]
     Active Substance: NITROGLYCERIN
  17. ALLEGRA [Concomitant]
     Active Substance: FEXOFENADINE HYDROCHLORIDE
  18. MOBIC [Concomitant]
     Active Substance: MELOXICAM
  19. FLAXSEED [Concomitant]
     Active Substance: FLAX SEED
  20. FOLIC ACID. [Concomitant]
     Active Substance: FOLIC ACID

REACTIONS (2)
  - Nausea [Unknown]
  - Headache [Unknown]

NARRATIVE: CASE EVENT DATE: 20090807
